FAERS Safety Report 8295639-X (Version None)
Quarter: 2012Q2

REPORT INFORMATION
  Report Type: 
  Country: None (occurrence: None)
  Receive Date: 20120416
  Receipt Date: 20120416
  Transmission Date: 20120825
  Serious: No
  Sender: FDA-Public Use
  Company Number: None

PATIENT
  Age: 78 Year
  Sex: Female

DRUGS (3)
  1. FLONASE [Suspect]
  2. LIPITOR [Suspect]
  3. FLUTICASONE PROPIONATE [Suspect]

REACTIONS (2)
  - VERTIGO [None]
  - GINGIVAL BLEEDING [None]
